FAERS Safety Report 15236846 (Version 1)
Quarter: 2018Q3

REPORT INFORMATION
  Report Type: Spontaneous
  Country: US (occurrence: US)
  Receive Date: 20180803
  Receipt Date: 20180803
  Transmission Date: 20181010
  Serious: No
  Sender: FDA-Public Use
  Company Number: US-SA-2018SA201004

PATIENT

DRUGS (4)
  1. LEUPRORELIN ACETATE [Suspect]
     Active Substance: LEUPROLIDE ACETATE
     Dosage: 30 MG, Q4M
     Dates: start: 20160114
  2. CARBOPLATIN. [Suspect]
     Active Substance: CARBOPLATIN
     Indication: PROSTATE CANCER METASTATIC
     Dosage: 75 MG, EVERY 21 DAYS
     Route: 042
     Dates: start: 20160324
  3. JEVTANA [Suspect]
     Active Substance: CABAZITAXEL
     Dosage: UNK UNK, UNK
  4. DOCETAXEL. [Suspect]
     Active Substance: DOCETAXEL
     Indication: PROSTATE CANCER METASTATIC
     Dosage: 180 MG, Q3W
     Dates: start: 20160114

REACTIONS (1)
  - Overdose [Unknown]
